FAERS Safety Report 12912938 (Version 4)
Quarter: 2017Q1

REPORT INFORMATION
  Report Type: Spontaneous
  Country: US (occurrence: US)
  Receive Date: 20161104
  Receipt Date: 20170123
  Transmission Date: 20170428
  Serious: Yes (Hospitalization, Other)
  Sender: FDA-Public Use
  Company Number: US-PFIZER INC-2016510191

PATIENT
  Age: 68 Year
  Sex: Male

DRUGS (5)
  1. LYRICA [Suspect]
     Active Substance: PREGABALIN
     Dosage: 100 MG, 2X/DAY
  2. AMBIEN [Concomitant]
     Active Substance: ZOLPIDEM TARTRATE
     Dosage: UNK
  3. LYRICA [Suspect]
     Active Substance: PREGABALIN
     Indication: BURNING MOUTH SYNDROME
     Dosage: 200 MG, 2X/DAY
  4. ALPHA LIPOIC ACID [Suspect]
     Active Substance: .ALPHA.-LIPOIC ACID
     Indication: BURNING MOUTH SYNDROME
     Dosage: 600 MG, 2X/DAY
  5. CLONAZEPAM. [Suspect]
     Active Substance: CLONAZEPAM
     Indication: BURNING MOUTH SYNDROME
     Dosage: 0.5 MG, 2X/DAY

REACTIONS (4)
  - Suicidal ideation [Unknown]
  - Depression [Recovered/Resolved]
  - Drug dose omission [Unknown]
  - Drug ineffective for unapproved indication [Not Recovered/Not Resolved]

NARRATIVE: CASE EVENT DATE: 2015
